FAERS Safety Report 8617441-9 (Version None)
Quarter: 2012Q3

REPORT INFORMATION
  Report Type: 
  Country: None (occurrence: None)
  Receive Date: 20120824
  Receipt Date: 20120817
  Transmission Date: 20120928
  Serious: Yes (Hospitalization, Other)
  Sender: FDA-Public Use
  Company Number: US-009507513-1203USA00787

PATIENT

DRUGS (3)
  1. SYNTHROID [Concomitant]
     Indication: HYPOTHYROIDISM
     Dosage: UNK MG, UNK
     Route: 048
     Dates: start: 20000101
  2. FOSAMAX [Suspect]
     Indication: OSTEOPENIA
     Dosage: 70 MG, UNK
     Route: 048
     Dates: start: 20010720, end: 20081101
  3. HORMONES (UNSPECIFIED) [Concomitant]
     Dates: start: 20000101, end: 20100101

REACTIONS (25)
  - PATELLOFEMORAL PAIN SYNDROME [None]
  - DIZZINESS [None]
  - OSTEOMA [None]
  - GOUT [None]
  - MITRAL VALVE PROLAPSE [None]
  - OSTEOARTHRITIS [None]
  - TONSILLECTOMY [None]
  - MUSCLE STRAIN [None]
  - PALPITATIONS [None]
  - MENOPAUSAL SYMPTOMS [None]
  - LIGAMENT SPRAIN [None]
  - HAEMORRHOIDS [None]
  - POLYP COLORECTAL [None]
  - MENISCUS LESION [None]
  - CATARACT [None]
  - ABSCESS ORAL [None]
  - FEMUR FRACTURE [None]
  - FRACTURE NONUNION [None]
  - FALL [None]
  - ABDOMINAL PAIN [None]
  - CARPAL TUNNEL SYNDROME [None]
  - DEVICE FAILURE [None]
  - PAIN IN EXTREMITY [None]
  - ARTHRALGIA [None]
  - ARTHRITIS [None]
